FAERS Safety Report 17806658 (Version 1)
Quarter: 2020Q2

REPORT INFORMATION
  Report Type: Spontaneous
  Country: US (occurrence: US)
  Receive Date: 20200519
  Receipt Date: 20200519
  Transmission Date: 20200714
  Serious: Yes (Other)
  Sender: FDA-Public Use
  Company Number: None

PATIENT
  Age: 55 Year
  Sex: Female
  Weight: 98.55 kg

DRUGS (7)
  1. FURISEMIDE 40MG [Concomitant]
     Dates: start: 20200517
  2. HEPARIN [Concomitant]
     Active Substance: HEPARIN SODIUM
     Dates: start: 20200515
  3. AMLODIPINE [Concomitant]
     Active Substance: AMLODIPINE BESYLATE
     Dates: start: 20200516
  4. ASCORBIC ACID 1000MG [Concomitant]
     Dates: start: 20200516
  5. DOXYCYCLINE 100MG [Concomitant]
     Active Substance: DOXYCYCLINE
     Dates: start: 20200516
  6. REMDESIVIR EUA [Suspect]
     Active Substance: REMDESIVIR
     Indication: COVID-19
     Dates: start: 20200515, end: 20200517
  7. CEFTRIAXONE 1G [Concomitant]
     Dates: start: 20200516

REACTIONS (3)
  - Haemodialysis [None]
  - Blood creatinine increased [None]
  - Condition aggravated [None]

NARRATIVE: CASE EVENT DATE: 20200516
